FAERS Safety Report 12277438 (Version 4)
Quarter: 2016Q3

REPORT INFORMATION
  Report Type: Spontaneous
  Country: JP (occurrence: JP)
  Receive Date: 20160418
  Receipt Date: 20160726
  Transmission Date: 20161109
  Serious: Yes (Life-Threatening, Hospitalization)
  Sender: FDA-Public Use
  Company Number: JP-ACTELION-A-CH2016-134435

PATIENT
  Age: 75 Year
  Sex: Female

DRUGS (11)
  1. TRACLEER [Suspect]
     Active Substance: BOSENTAN
     Indication: SCLERODERMA ASSOCIATED DIGITAL ULCER
     Dosage: 62.5 MG, QD
     Route: 048
     Dates: start: 20160309, end: 20160327
  2. SODIUM RABEPRAZOLE [Concomitant]
     Active Substance: RABEPRAZOLE SODIUM
  3. DIQUAFOSOL TETRASODIUM [Concomitant]
     Active Substance: DIQUAFOSOL TETRASODIUM
  4. LEVOCETIRIZINE HYDROCHLORIDE [Concomitant]
     Active Substance: LEVOCETIRIZINE HYDROCHLORIDE
  5. ACETAMINOPHEN. [Concomitant]
     Active Substance: ACETAMINOPHEN
  6. BETAMETHASONE W/DEXCHLORPHENIRAMINE MALEATE [Concomitant]
  7. ALPRAZOLAM. [Concomitant]
     Active Substance: ALPRAZOLAM
  8. CRAVIT [Concomitant]
     Active Substance: LEVOFLOXACIN
  9. SODIUM HYALURONATE [Concomitant]
     Active Substance: HYALURONATE SODIUM
  10. BERAPROST SODIUM [Concomitant]
     Active Substance: BERAPROST SODIUM
  11. REBAMIPIDE [Concomitant]
     Active Substance: REBAMIPIDE

REACTIONS (12)
  - Gallbladder enlargement [Recovering/Resolving]
  - Cholecystitis [Recovering/Resolving]
  - Systemic inflammatory response syndrome [Recovering/Resolving]
  - Hepatic enzyme increased [Recovering/Resolving]
  - Cholelithiasis [Recovering/Resolving]
  - Abdominal pain [Recovering/Resolving]
  - Chills [Recovering/Resolving]
  - Hyperthermia [Recovering/Resolving]
  - Concomitant disease aggravated [Recovering/Resolving]
  - Sepsis [Recovering/Resolving]
  - General physical health deterioration [Recovering/Resolving]
  - Vomiting [Recovering/Resolving]

NARRATIVE: CASE EVENT DATE: 20160316
